FAERS Safety Report 5626025-6 (Version None)
Quarter: 2008Q1

REPORT INFORMATION
  Report Type: 
  Country: None (occurrence: None)
  Receive Date: 20080214
  Receipt Date: 20080205
  Transmission Date: 20080703
  Serious: Yes (Other)
  Sender: FDA-Public Use
  Company Number: PHHY2008JP01405

PATIENT
  Age: 43 Year
  Sex: Male

DRUGS (3)
  1. PARLODEL [Suspect]
     Route: 048
     Dates: start: 20040101
  2. ANAFRANIL [Suspect]
  3. REQUIP [Concomitant]

REACTIONS (1)
  - CONGESTIVE CARDIOMYOPATHY [None]
